FAERS Safety Report 14917324 (Version 1)
Quarter: 2018Q2

REPORT INFORMATION
  Report Type: Spontaneous
  Country: US (occurrence: US)
  Receive Date: 20180521
  Receipt Date: 20180521
  Transmission Date: 20180711
  Serious: Yes (Other)
  Sender: FDA-Public Use
  Company Number: US-TEVA-2018-US-894265

PATIENT

DRUGS (1)
  1. PROVIGIL [Suspect]
     Active Substance: MODAFINIL
     Route: 065

REACTIONS (5)
  - Paranoia [Unknown]
  - Mood swings [Unknown]
  - Mental disorder [Unknown]
  - Sleep paralysis [Unknown]
  - Injury [Unknown]
